FAERS Safety Report 4770833-0 (Version None)
Quarter: 2005Q3

REPORT INFORMATION
  Report Type: 
  Country: None (occurrence: None)
  Receive Date: 20050915
  Receipt Date: 20050715
  Transmission Date: 20060218
  Serious: Yes (Hospitalization)
  Sender: FDA-Public Use
  Company Number: JP-GLAXOSMITHKLINE-B0388054A

PATIENT
  Sex: Male
  Weight: 2.7 kg

DRUGS (4)
  1. PAXIL [Suspect]
     Dosage: 40MG PER DAY
     Dates: end: 20050713
  2. HIRNAMIN [Suspect]
     Dosage: 10MG FOUR TIMES PER DAY
     Dates: end: 20050713
  3. MYSLEE [Suspect]
     Dosage: 10MG PER DAY
     Dates: end: 20050713
  4. LEXOTAN [Suspect]
     Dosage: 5MG THREE TIMES PER DAY
     Dates: end: 20050713

REACTIONS (11)
  - CAESAREAN SECTION [None]
  - CONVULSION [None]
  - CONVULSION NEONATAL [None]
  - DRUG EXPOSURE DURING PREGNANCY [None]
  - DRUG WITHDRAWAL SYNDROME [None]
  - FEEDING DISORDER NEONATAL [None]
  - FEELING JITTERY [None]
  - MOANING [None]
  - SOMNOLENCE [None]
  - SOMNOLENCE NEONATAL [None]
  - TACHYPNOEA [None]
